FAERS Safety Report 8777403 (Version 2)
Quarter: 2012Q4

REPORT INFORMATION
  Report Type: Report from Study
  Country: DE (occurrence: DE)
  Receive Date: 20120911
  Receipt Date: 20120911
  Transmission Date: 20130627
  Serious: Yes (Hospitalization)
  Sender: FDA-Public Use
  Company Number: DE-PFIZER INC-DE-WYE-G06414710

PATIENT
  Age: 77 Year
  Sex: Male
  Weight: 69 kg

DRUGS (10)
  1. PIPERACILLIN / TAZOBACTAM [Suspect]
     Indication: PNEUMONIA
     Dosage: 4.5 g, 3x/day
     Route: 042
     Dates: start: 20100412, end: 20100420
  2. PANTOZOL [Interacting]
     Indication: GASTRITIS
     Dosage: 20.0 mg, 1x/day
     Route: 048
     Dates: start: 20100413
  3. CEFTRIAXONE [Interacting]
     Indication: PNEUMONIA
     Dosage: 2.0 g, 2x/day
     Route: 042
     Dates: start: 20100408, end: 20100411
  4. ROXITHROMYCIN [Interacting]
     Indication: PNEUMONIA
     Dosage: 300.0 mg, 1x/day
     Route: 048
     Dates: start: 20100408, end: 20100411
  5. ACETYLSALICYLIC ACID [Concomitant]
     Dosage: UNK
     Route: 048
     Dates: start: 201004
  6. AMIODARONE [Concomitant]
     Dosage: UNK
     Route: 048
     Dates: start: 200911
  7. DIGITOXIN [Concomitant]
     Dosage: UNK
     Route: 048
     Dates: start: 200911
  8. L-THYROXIN [Concomitant]
     Dosage: UNK
     Route: 048
     Dates: start: 200911
  9. TORASEMIDE [Concomitant]
     Dosage: UNK
     Route: 048
     Dates: start: 200911
  10. XIPAMIDE [Concomitant]
     Dosage: UNK
     Route: 048
     Dates: start: 201003, end: 201005

REACTIONS (8)
  - Drug interaction [Recovered/Resolved]
  - Clostridium difficile colitis [Recovered/Resolved]
  - Blood creatinine increased [None]
  - Occult blood positive [None]
  - Blood calcium decreased [None]
  - Blood sodium decreased [None]
  - Blood urea increased [None]
  - Blood potassium decreased [None]
